FAERS Safety Report 8840970 (Version 1)
Quarter: 2012Q4

REPORT INFORMATION
  Report Type: 
  Country: US (occurrence: US)
  Receive Date: 20121015
  Receipt Date: 20121015
  Transmission Date: 20130627
  Serious: Yes (Hospitalization)
  Sender: FDA-Public Use
  Company Number: US-ELI_LILLY_AND_COMPANY-US201210001051

PATIENT
  Sex: Female

DRUGS (3)
  1. FORTEO [Suspect]
     Indication: OSTEOPOROSIS
     Dosage: 20 u, qd
     Dates: start: 201012
  2. SINGULAIR [Concomitant]
     Indication: SINUS DISORDER
     Dosage: UNK
  3. ALLEGRA [Concomitant]
     Indication: SINUS DISORDER
     Dosage: UNK

REACTIONS (1)
  - Upper limb fracture [Recovered/Resolved with Sequelae]
